FAERS Safety Report 10522120 (Version 1)
Quarter: 2014Q4

REPORT INFORMATION
  Report Type: Spontaneous
  Country: US (occurrence: None)
  Receive Date: 20141014
  Receipt Date: 20141014
  Transmission Date: 20150528
  Serious: Yes (Other)
  Sender: FDA-Public Use
  Company Number: 2014-US-0124741

PATIENT
  Age: 54 Year
  Sex: Female
  Weight: 56.7 kg

DRUGS (2)
  1. XYREM [Suspect]
     Active Substance: SODIUM OXYBATE
     Indication: CATAPLEXY
     Route: 048
     Dates: start: 200504
  2. XYREM [Suspect]
     Active Substance: SODIUM OXYBATE
     Indication: NARCOLEPSY
     Route: 048
     Dates: start: 200504

REACTIONS (3)
  - Pancreatitis chronic [None]
  - Dilatation intrahepatic duct acquired [None]
  - Pain [None]

NARRATIVE: CASE EVENT DATE: 201409
